FAERS Safety Report 24460118 (Version 1)
Quarter: 2024Q4

REPORT INFORMATION
  Report Type: Other
  Country: US (occurrence: US)
  Receive Date: 20241018
  Receipt Date: 20241018
  Transmission Date: 20250115
  Serious: Yes (Other)
  Sender: ALVOGEN
  Company Number: US-ALVOGEN-2024095671

PATIENT
  Age: 69 Year
  Sex: Female

DRUGS (8)
  1. DOXORUBICIN [Suspect]
     Active Substance: DOXORUBICIN
     Indication: Hormone receptor positive breast cancer
     Dosage: CYCLE 1?60 MG/M2 IN EACH CYCLE FOR 4 CYCLES EVERY 2 WEEKS
  2. DOXORUBICIN [Suspect]
     Active Substance: DOXORUBICIN
     Indication: Hormone receptor positive breast cancer
     Dosage: CYCLE 2?60 MG/M2 IN EACH CYCLE FOR 4 CYCLES EVERY 2 WEEKS
  3. DOXORUBICIN [Suspect]
     Active Substance: DOXORUBICIN
     Indication: Hormone receptor positive breast cancer
     Dosage: CYCLE 3?60 MG/M2 IN EACH CYCLE FOR 4 CYCLES EVERY 2 WEEKS
  4. DOXORUBICIN [Suspect]
     Active Substance: DOXORUBICIN
     Indication: Hormone receptor positive breast cancer
     Dosage: CYCLE 4?60 MG/M2 IN EACH CYCLE FOR 4 CYCLES EVERY 2 WEEKS
  5. CYCLOPHOSPHAMIDE [Suspect]
     Active Substance: CYCLOPHOSPHAMIDE
     Indication: Hormone receptor positive breast cancer
     Dosage: CYCLE 1?600 MG/M2 IN EACH CYCLE FOR 4 CYCLES EVERY 2 WEEKS
  6. CYCLOPHOSPHAMIDE [Suspect]
     Active Substance: CYCLOPHOSPHAMIDE
     Indication: Hormone receptor positive breast cancer
     Dosage: CYCLE 2?600 MG/M2 IN EACH CYCLE FOR 4 CYCLES EVERY 2 WEEKS
  7. CYCLOPHOSPHAMIDE [Suspect]
     Active Substance: CYCLOPHOSPHAMIDE
     Indication: Hormone receptor positive breast cancer
     Dosage: CYCLE 3?600 MG/M2 IN EACH CYCLE FOR 4 CYCLES EVERY 2 WEEKS
  8. CYCLOPHOSPHAMIDE [Suspect]
     Active Substance: CYCLOPHOSPHAMIDE
     Indication: Hormone receptor positive breast cancer
     Dosage: CYCLE 4?600 MG/M2 IN EACH CYCLE FOR 4 CYCLES EVERY 2 WEEKS

REACTIONS (7)
  - Electrocardiogram QT prolonged [Unknown]
  - Neutropenia [Unknown]
  - Supraventricular extrasystoles [Unknown]
  - Electrocardiogram low voltage [Unknown]
  - QRS axis abnormal [Unknown]
  - Ventricular extrasystoles [Unknown]
  - Sinus tachycardia [Unknown]
